FAERS Safety Report 18671924 (Version 1)
Quarter: 2020Q4

REPORT INFORMATION
  Report Type: Spontaneous
  Country: SG (occurrence: SG)
  Receive Date: 20201228
  Receipt Date: 20201228
  Transmission Date: 20210114
  Serious: Yes (Other)
  Sender: FDA-Public Use
  Company Number: SG-JNJFOC-20201242882

PATIENT
  Sex: Male

DRUGS (5)
  1. CEFAZOLIN [Suspect]
     Active Substance: CEFAZOLIN
     Indication: PRODUCT USED FOR UNKNOWN INDICATION
     Route: 042
  2. MIDAZOLAM. [Suspect]
     Active Substance: MIDAZOLAM
     Indication: PRODUCT USED FOR UNKNOWN INDICATION
     Route: 065
  3. ONDANSETRON [Suspect]
     Active Substance: ONDANSETRON
     Indication: PRODUCT USED FOR UNKNOWN INDICATION
     Route: 065
  4. PROPOFOL. [Suspect]
     Active Substance: PROPOFOL
     Indication: PRODUCT USED FOR UNKNOWN INDICATION
     Route: 065
  5. DUROGESIC [Suspect]
     Active Substance: FENTANYL
     Indication: PRODUCT USED FOR UNKNOWN INDICATION
     Route: 065

REACTIONS (2)
  - Angioedema [Unknown]
  - Rash [Unknown]
